FAERS Safety Report 26101229 (Version 2)
Quarter: 2025Q4

REPORT INFORMATION
  Report Type: Spontaneous
  Country: US (occurrence: US)
  Receive Date: 20251128
  Receipt Date: 20251208
  Transmission Date: 20260117
  Serious: No
  Sender: BRISTOL-MYERS SQUIBB COMPANY
  Company Number: US-EXELIXIS-EXL-2025-013399

PATIENT
  Age: 29 Year
  Sex: Male

DRUGS (3)
  1. OPDIVO [Suspect]
     Active Substance: NIVOLUMAB
     Indication: Product used for unknown indication
     Route: 042
  2. CABOMETYX [Suspect]
     Active Substance: CABOZANTINIB S-MALATE
     Indication: Renal cancer
     Dosage: 40 MG
  3. LOPERAMIDE [Concomitant]
     Active Substance: LOPERAMIDE
     Indication: Product used for unknown indication

REACTIONS (8)
  - Nausea [Recovering/Resolving]
  - Pruritus [Unknown]
  - Hunger [Unknown]
  - Memory impairment [Unknown]
  - Wound [Unknown]
  - Dyspepsia [Unknown]
  - Impaired healing [Unknown]
  - Diarrhoea [Unknown]
